FAERS Safety Report 7871070-3 (Version None)
Quarter: 2011Q4

REPORT INFORMATION
  Report Type: 
  Country: None (occurrence: None)
  Receive Date: 20111029
  Receipt Date: 20110224
  Transmission Date: 20120403
  Serious: No
  Sender: FDA-Public Use
  Company Number: US-AMGEN-USASP2011008953

PATIENT
  Age: 46 Year
  Sex: Male

DRUGS (1)
  1. ENBREL [Suspect]
     Indication: PSORIASIS
     Dosage: 50 MG, QWK
     Dates: start: 20050101

REACTIONS (6)
  - LACERATION [None]
  - HEPATIC ENZYME INCREASED [None]
  - BACK INJURY [None]
  - SCRATCH [None]
  - BACK PAIN [None]
  - INJECTION SITE PAIN [None]
